FAERS Safety Report 22015679 (Version 1)
Quarter: 2023Q1

REPORT INFORMATION
  Report Type: Spontaneous
  Country: JP (occurrence: JP)
  Receive Date: 20230221
  Receipt Date: 20230221
  Transmission Date: 20230417
  Serious: Yes (Hospitalization, Other)
  Sender: FDA-Public Use
  Company Number: JP-GLAXOSMITHKLINE-JP2022JPN066379

PATIENT

DRUGS (14)
  1. DAPRODUSTAT [Suspect]
     Active Substance: DAPRODUSTAT
     Indication: Nephrogenic anaemia
     Dosage: 2 MG
     Route: 048
     Dates: start: 20210826, end: 20210908
  2. DAPRODUSTAT [Suspect]
     Active Substance: DAPRODUSTAT
     Dosage: 4 MG
     Route: 048
     Dates: start: 20210909, end: 20210926
  3. DAPRODUSTAT [Suspect]
     Active Substance: DAPRODUSTAT
     Dosage: 6 MG
     Route: 048
     Dates: start: 20210927, end: 20211027
  4. DAPRODUSTAT [Suspect]
     Active Substance: DAPRODUSTAT
     Dosage: 8 MG
     Route: 048
     Dates: start: 20211028, end: 20220310
  5. MIRCERA [Concomitant]
     Active Substance: METHOXY POLYETHYLENE GLYCOL-EPOETIN BETA
     Indication: Nephrogenic anaemia
     Dosage: UNK
  6. CRESTOR [Concomitant]
     Active Substance: ROSUVASTATIN CALCIUM
     Indication: Hypercholesterolaemia
     Dosage: 2.5 MG, QD
     Dates: start: 201405
  7. ATELEC TABLETS [Concomitant]
     Indication: Hypertension
     Dosage: 20 MG, QD
     Dates: start: 201405
  8. PARIET TABLET [Concomitant]
     Indication: Gastritis
     Dosage: 10 MG, QD
     Dates: start: 201405
  9. FEBUXOSTAT [Concomitant]
     Active Substance: FEBUXOSTAT
     Indication: Hyperuricaemia
     Dosage: 40 MG, QD
     Dates: start: 201405
  10. NIFEDIPINE SUSTAINED-RELEASE TABLETS [Concomitant]
     Indication: Hypertension
     Dosage: 40 MG, BID
     Dates: start: 201405
  11. CARDENALIN TABLET [Concomitant]
     Indication: Hypertension
     Dosage: 2 MG, QD
     Dates: start: 201405
  12. AZOSEMIDE TABLET [Concomitant]
     Indication: Hypertension
     Dosage: 60 MG, QD
     Dates: start: 201405, end: 20220310
  13. KALIMATE POWDER [Concomitant]
     Indication: Hyperkalaemia
     Dosage: 5 G, TID
     Dates: start: 201405, end: 20220310
  14. SODIUM BICARBONATE [Concomitant]
     Active Substance: SODIUM BICARBONATE
     Indication: Metabolic acidosis
     Dosage: UNK
     Dates: start: 201405, end: 20220310

REACTIONS (5)
  - End stage renal disease [Unknown]
  - Fatigue [Unknown]
  - Peritoneal dialysis [Recovering/Resolving]
  - Prescribed underdose [Unknown]
  - Product use issue [Unknown]

NARRATIVE: CASE EVENT DATE: 20210826
